FAERS Safety Report 6179435-5 (Version None)
Quarter: 2009Q2

REPORT INFORMATION
  Report Type: 
  Country: None (occurrence: None)
  Receive Date: 20090505
  Receipt Date: 20090427
  Transmission Date: 20091009
  Serious: Yes (Other)
  Sender: FDA-Public Use
  Company Number: B0571672A

PATIENT
  Sex: Male
  Weight: 25 kg

DRUGS (9)
  1. RELENZA [Suspect]
     Indication: INFLUENZA
     Dosage: 10MG TWICE PER DAY
     Route: 055
     Dates: start: 20090421, end: 20090423
  2. SINGULAIR [Concomitant]
     Indication: ASTHMA
     Dosage: 5G PER DAY
     Route: 048
  3. THEO-DUR [Concomitant]
     Indication: ASTHMA
     Dosage: 50MG PER DAY
     Route: 048
  4. MUCODYNE [Concomitant]
     Indication: ASTHMA
     Dosage: 100MG PER DAY
     Route: 048
  5. FLOMOX [Concomitant]
     Route: 048
     Dates: start: 20090420
  6. MEDICON [Concomitant]
     Route: 048
     Dates: start: 20090420
  7. ZESULAN [Concomitant]
     Route: 048
     Dates: start: 20090420
  8. CLARITIN [Concomitant]
     Dosage: 10G PER DAY
     Route: 048
  9. FLUTIDE [Concomitant]
     Indication: ASTHMA
     Dosage: 200MCG PER DAY
     Route: 055

REACTIONS (2)
  - HALLUCINATION [None]
  - ORAL DISCOMFORT [None]
